FAERS Safety Report 6857109-2 (Version None)
Quarter: 2010Q3

REPORT INFORMATION
  Report Type: 
  Country: None (occurrence: None)
  Receive Date: 20100719
  Receipt Date: 20100712
  Transmission Date: 20110219
  Serious: Yes (Life-Threatening)
  Sender: FDA-Public Use
  Company Number: B0661678A

PATIENT
  Sex: Male
  Weight: 19 kg

DRUGS (5)
  1. CLAVAMOX [Suspect]
     Indication: OTITIS MEDIA ACUTE
     Dosage: 3.03G PER DAY
     Route: 048
     Dates: start: 20100614, end: 20100619
  2. ZADITEN [Concomitant]
     Dosage: 1.4G PER DAY
     Route: 048
     Dates: start: 20100607, end: 20100619
  3. UNKNOWN DRUG [Concomitant]
     Indication: PRODUCT USED FOR UNKNOWN INDICATION
     Dosage: 3G PER DAY
     Route: 048
     Dates: start: 20100607, end: 20100619
  4. MUCODYNE [Concomitant]
     Indication: PRODUCT USED FOR UNKNOWN INDICATION
     Dosage: 1.2G PER DAY
     Route: 048
     Dates: start: 20100614, end: 20100628
  5. CEFDINIR [Concomitant]
     Indication: OTITIS MEDIA
     Dates: start: 20100607

REACTIONS (1)
  - ABNORMAL BEHAVIOUR [None]
